FAERS Safety Report 12837105 (Version 1)
Quarter: 2016Q4

REPORT INFORMATION
  Report Type: Spontaneous
  Country: US (occurrence: US)
  Receive Date: 20161007
  Receipt Date: 20161007
  Transmission Date: 20170207
  Serious: Yes (Other)
  Sender: FDA-Public Use
  Company Number: None

PATIENT
  Age: 60 Year
  Sex: Male
  Weight: 112.7 kg

DRUGS (1)
  1. OPDIVO [Suspect]
     Active Substance: NIVOLUMAB
     Dosage: 60 MINUTE 340 MG ONCE?
     Route: 042

REACTIONS (2)
  - Infusion site erythema [None]
  - Infusion site swelling [None]

NARRATIVE: CASE EVENT DATE: 20161007
